FAERS Safety Report 11425255 (Version 1)
Quarter: 2015Q3

REPORT INFORMATION
  Report Type: Spontaneous
  Country: US (occurrence: US)
  Receive Date: 20150821
  Receipt Date: 20150821
  Transmission Date: 20151125
  Serious: No
  Sender: FDA-Public Use
  Company Number: US-ELI_LILLY_AND_COMPANY-US201103005627

PATIENT
  Age: 49 Year
  Sex: Female

DRUGS (5)
  1. HUMULIN R [Suspect]
     Active Substance: INSULIN HUMAN
     Indication: DIABETES MELLITUS
     Dosage: UNK
     Route: 058
     Dates: start: 20101220
  2. HUMULIN R [Suspect]
     Active Substance: INSULIN HUMAN
     Indication: DIABETES MELLITUS
     Dosage: UNK
  3. LANTUS [Concomitant]
     Active Substance: INSULIN GLARGINE
  4. HUMULIN R [Suspect]
     Active Substance: INSULIN HUMAN
     Dosage: UNK
     Route: 058
     Dates: start: 20101220
  5. CORTICOSTEROIDS [Concomitant]
     Active Substance: CORTICOSTEROID NOS
     Indication: DYSPNOEA
     Dosage: UNK

REACTIONS (4)
  - Blood glucose increased [Recovered/Resolved]
  - Blood glucose fluctuation [Unknown]
  - Fear [Unknown]
  - Drug ineffective [Recovered/Resolved]

NARRATIVE: CASE EVENT DATE: 201101
